FAERS Safety Report 13527286 (Version 1)
Quarter: 2017Q2

REPORT INFORMATION
  Report Type: Spontaneous
  Country: ES (occurrence: ES)
  Receive Date: 20170509
  Receipt Date: 20170509
  Transmission Date: 20170830
  Serious: Yes (Other)
  Sender: FDA-Public Use
  Company Number: ES-IPSEN BIOPHARMACEUTICALS, INC.-2017-03501

PATIENT
  Age: 56 Year
  Sex: Female

DRUGS (12)
  1. SOMATULINA AUTOGEL 90MG [Suspect]
     Active Substance: LANREOTIDE ACETATE
     Indication: ACROMEGALY
     Dosage: 90 MG
     Route: 065
  2. VENLAFAXINA [Concomitant]
     Active Substance: VENLAFAXINE HYDROCHLORIDE
  3. OMEPRAZOL [Concomitant]
     Active Substance: OMEPRAZOLE
  4. HYDROCORTISONA [Concomitant]
     Dates: start: 201403
  5. PEGVISOMANT [Concomitant]
     Active Substance: PEGVISOMANT
     Dates: start: 201412
  6. LEVOTIROXINA [Concomitant]
     Active Substance: LEVOTHYROXINE SODIUM
     Dates: start: 201403
  7. METFORMIN [Concomitant]
     Active Substance: METFORMIN HYDROCHLORIDE
  8. LORACEPAM [Concomitant]
  9. SOMATULINA AUTOGEL 90MG [Suspect]
     Active Substance: LANREOTIDE ACETATE
     Dosage: 120 MG
     Route: 065
     Dates: start: 20150427, end: 20160929
  10. CABERGOLINA [Concomitant]
     Active Substance: CABERGOLINE
     Dates: start: 2016
  11. PEGVISOMANT [Concomitant]
     Active Substance: PEGVISOMANT
     Dates: start: 201503
  12. PEGVISOMANT [Concomitant]
     Active Substance: PEGVISOMANT
     Dates: start: 201703

REACTIONS (4)
  - Biliary colic [Recovered/Resolved]
  - Vomiting [Unknown]
  - Cholelithiasis [Not Recovered/Not Resolved]
  - Surgery [Unknown]

NARRATIVE: CASE EVENT DATE: 201609
